FAERS Safety Report 9237547 (Version 2)
Quarter: 2013Q2

REPORT INFORMATION
  Report Type: Spontaneous
  Country: CA (occurrence: CA)
  Receive Date: 20130418
  Receipt Date: 20130422
  Transmission Date: 20140414
  Serious: Yes (Hospitalization, Other)
  Sender: FDA-Public Use
  Company Number: CA-AMGEN-CANSP2013026071

PATIENT
  Age: 68 Year
  Sex: Female

DRUGS (1)
  1. SENSIPAR [Suspect]
     Indication: RENAL FAILURE CHRONIC
     Dosage: 60 MG, UNK
     Dates: start: 20090903

REACTIONS (4)
  - Surgery [Unknown]
  - Fall [Unknown]
  - Impaired healing [Unknown]
  - Weight bearing difficulty [Unknown]
